FAERS Safety Report 8444568-7 (Version None)
Quarter: 2012Q2

REPORT INFORMATION
  Report Type: 
  Country: None (occurrence: None)
  Receive Date: 20120618
  Receipt Date: 20120608
  Transmission Date: 20120825
  Serious: Yes (Hospitalization)
  Sender: FDA-Public Use
  Company Number: US-BAYER-201024697NA

PATIENT
  Age: 22 Year
  Sex: Female
  Weight: 56.689 kg

DRUGS (2)
  1. NAPROXEN [Concomitant]
  2. YAZ [Suspect]
     Indication: CONTRACEPTION
     Dosage: UNK
     Route: 048

REACTIONS (3)
  - CEREBROVASCULAR ACCIDENT [None]
  - ISCHAEMIC STROKE [None]
  - CEREBRAL ARTERY THROMBOSIS [None]
